FAERS Safety Report 17336462 (Version 1)
Quarter: 2020Q1

REPORT INFORMATION
  Report Type: Spontaneous
  Country: CN (occurrence: CN)
  Receive Date: 20200128
  Receipt Date: 20200128
  Transmission Date: 20200409
  Serious: Yes (Hospitalization)
  Sender: FDA-Public Use
  Company Number: CN-BAYER-2020-010083

PATIENT
  Age: 33 Year
  Sex: Female
  Weight: 60 kg

DRUGS (1)
  1. YASMIN [Suspect]
     Active Substance: DROSPIRENONE\ETHINYL ESTRADIOL
     Indication: MENSTRUAL DISORDER
     Dosage: 3 MG, QD
     Route: 048
     Dates: start: 20200105, end: 20200111

REACTIONS (6)
  - Head discomfort [Recovered/Resolved]
  - Hypoaesthesia [Recovering/Resolving]
  - Product use in unapproved indication [None]
  - Hypertension [Recovering/Resolving]
  - Blood pressure increased [Recovering/Resolving]
  - Off label use [None]

NARRATIVE: CASE EVENT DATE: 20200105
